FAERS Safety Report 20440439 (Version 1)
Quarter: 2022Q1

REPORT INFORMATION
  Report Type: Spontaneous
  Country: US (occurrence: None)
  Receive Date: 20220207
  Receipt Date: 20220207
  Transmission Date: 20220423
  Serious: Yes (Hospitalization)
  Sender: FDA-Public Use
  Company Number: None

PATIENT
  Age: 74 Year
  Sex: Male

DRUGS (1)
  1. PACERONE [Suspect]
     Active Substance: AMIODARONE HYDROCHLORIDE
     Indication: Atrial fibrillation
     Dates: start: 20210924, end: 20220104

REACTIONS (2)
  - Pulmonary fibrosis [None]
  - Respiratory depression [None]

NARRATIVE: CASE EVENT DATE: 20211227
